FAERS Safety Report 5870962-4 (Version None)
Quarter: 2008Q3

REPORT INFORMATION
  Report Type: 
  Country: None (occurrence: None)
  Receive Date: 20080904
  Receipt Date: 20080901
  Transmission Date: 20090109
  Serious: Yes (Disabling)
  Sender: FDA-Public Use
  Company Number: GB-EISAI MEDICAL RESEARCH-E2020-01951-SPO-GB

PATIENT
  Sex: Female

DRUGS (10)
  1. MEMAC [Suspect]
     Indication: DEMENTIA ALZHEIMER'S TYPE
     Route: 048
     Dates: start: 20071026, end: 20071201
  2. ARICEPT [Concomitant]
     Indication: DEMENTIA ALZHEIMER'S TYPE
     Route: 048
     Dates: start: 20070530, end: 20070701
  3. ARICEPT [Concomitant]
     Route: 048
     Dates: start: 20070701, end: 20071024
  4. ARICEPT [Concomitant]
     Dosage: UNKNOWN
     Route: 048
     Dates: start: 20071201
  5. BENDROFLUMETHIAZIDE [Concomitant]
  6. ENALAPRIL MALEATE [Concomitant]
  7. FLUOXETINE [Concomitant]
  8. LANSOPRAZOLE [Concomitant]
  9. CORACTEN [Concomitant]
  10. ALVERINE [Concomitant]

REACTIONS (11)
  - AMNESIA [None]
  - ANXIETY [None]
  - CONFUSIONAL STATE [None]
  - DEPRESSION [None]
  - DISORIENTATION [None]
  - DYSARTHRIA [None]
  - FALL [None]
  - FEAR [None]
  - FRUSTRATION [None]
  - HEADACHE [None]
  - MENTAL IMPAIRMENT [None]
